FAERS Safety Report 10559022 (Version 4)
Quarter: 2014Q4

REPORT INFORMATION
  Report Type: Report from Study
  Country: CA (occurrence: CA)
  Receive Date: 20141103
  Receipt Date: 20141117
  Transmission Date: 20150529
  Serious: Yes (Death, Hospitalization, Other)
  Sender: FDA-Public Use
  Company Number: CA-ROCHE-1211292

PATIENT
  Age: 77 Year
  Sex: Male
  Weight: 60.8 kg

DRUGS (7)
  1. AVASTIN [Suspect]
     Active Substance: BEVACIZUMAB
     Dosage: DOSE REDUCED
     Route: 042
     Dates: start: 20121218
  2. AVASTIN [Suspect]
     Active Substance: BEVACIZUMAB
     Indication: LUNG ADENOCARCINOMA
     Route: 042
     Dates: start: 20120815
  3. AVASTIN [Suspect]
     Active Substance: BEVACIZUMAB
     Dosage: DOSE INCREASED
     Route: 042
     Dates: start: 20130220
  4. AVASTIN [Suspect]
     Active Substance: BEVACIZUMAB
     Dosage: DOSE REDUCED
     Route: 042
     Dates: start: 20130515
  5. ATORVASTATIN [Concomitant]
     Active Substance: ATORVASTATIN
  6. AVASTIN [Suspect]
     Active Substance: BEVACIZUMAB
     Dosage: DOSE REDUCED
     Route: 042
     Dates: start: 20130313
  7. AVASTIN [Suspect]
     Active Substance: BEVACIZUMAB
     Route: 042
     Dates: start: 20140423, end: 20140903

REACTIONS (9)
  - Pneumonia [Unknown]
  - Decreased appetite [Unknown]
  - Malignant neoplasm progression [Fatal]
  - White blood cell count increased [Not Recovered/Not Resolved]
  - Weight decreased [Unknown]
  - Anxiety [Unknown]
  - Asthenia [Not Recovered/Not Resolved]
  - Laceration [Recovering/Resolving]
  - Infection [Not Recovered/Not Resolved]

NARRATIVE: CASE EVENT DATE: 20140527
